FAERS Safety Report 8273267 (Version 4)
Quarter: 2013Q1

REPORT INFORMATION
  Report Type: Report from Study
  Country: JP (occurrence: JP)
  Receive Date: 20111202
  Receipt Date: 20130311
  Transmission Date: 20140127
  Serious: Yes (Other)
  Sender: FDA-Public Use
  Company Number: JP-CELGENEUS-087-21880-11030194

PATIENT
  Age: 66 Year
  Sex: Female

DRUGS (79)
  1. REVLIMID [Suspect]
     Indication: PLASMA CELL MYELOMA
     Dosage: 10 MILLIGRAM
     Route: 048
     Dates: start: 20110113, end: 20110203
  2. REVLIMID [Suspect]
     Dosage: 10 MILLIGRAM
     Route: 048
     Dates: start: 20110210, end: 20110302
  3. REVLIMID [Suspect]
     Dosage: 15 MILLIGRAM
     Route: 048
     Dates: start: 20110310, end: 20110330
  4. REVLIMID [Suspect]
     Dosage: 15 MILLIGRAM
     Route: 048
     Dates: start: 20110407, end: 20110419
  5. REVLIMID [Suspect]
     Dosage: 10 MILLIGRAM
     Route: 048
     Dates: start: 20110524, end: 20110614
  6. REVLIMID [Suspect]
     Dosage: 10 MILLIGRAM
     Route: 048
     Dates: start: 20110621, end: 20110705
  7. REVLIMID [Suspect]
     Dosage: 10 MILLIGRAM
     Route: 048
     Dates: start: 20110802, end: 20110822
  8. REVLIMID [Suspect]
     Dosage: 10 MILLIGRAM
     Route: 048
     Dates: start: 20110906, end: 20110926
  9. REVLIMID [Suspect]
     Dosage: 5 MILLIGRAM
     Route: 048
     Dates: start: 20111025, end: 20111114
  10. REVLIMID [Suspect]
     Dosage: 5 MILLIGRAM
     Route: 048
     Dates: start: 20111130, end: 20111220
  11. REVLIMID [Suspect]
     Dosage: 5 MILLIGRAM
     Route: 048
     Dates: start: 20111228, end: 20120110
  12. REVLIMID [Suspect]
     Dosage: 5 MILLIGRAM
     Route: 048
     Dates: start: 20120125, end: 20120207
  13. REVLIMID [Suspect]
     Dosage: 5 MILLIGRAM
     Route: 048
     Dates: start: 20120214, end: 20120306
  14. REVLIMID [Suspect]
     Dosage: 5 MILLIGRAM
     Route: 048
     Dates: start: 20120313, end: 20120403
  15. REVLIMID [Suspect]
     Dosage: 10 MILLIGRAM
     Route: 048
     Dates: start: 20120410, end: 20120430
  16. REVLIMID [Suspect]
     Dosage: 10 MILLIGRAM
     Route: 048
     Dates: start: 20120508, end: 20120528
  17. REVLIMID [Suspect]
     Dosage: 10 MILLIGRAM
     Route: 048
     Dates: start: 20120605, end: 20120625
  18. REVLIMID [Suspect]
     Dosage: 10 MILLIGRAM
     Route: 048
     Dates: start: 20120703, end: 20120716
  19. LENADEX [Suspect]
     Indication: PLASMA CELL MYELOMA
     Dosage: 320 MILLIGRAM
     Route: 048
     Dates: start: 20110210, end: 20110301
  20. LENADEX [Suspect]
     Dosage: 40 MILLIGRAM
     Route: 048
     Dates: start: 20110310, end: 20110330
  21. LENADEX [Suspect]
     Dosage: 40 MILLIGRAM
     Route: 048
     Dates: start: 20110407, end: 20110426
  22. LENADEX [Suspect]
     Dosage: 40 MILLIGRAM
     Route: 048
     Dates: start: 20111025, end: 20111028
  23. LENADEX [Suspect]
     Dosage: 4 MILLIGRAM
     Route: 048
     Dates: start: 20111029, end: 20111114
  24. LENADEX [Suspect]
     Dosage: 40 MILLIGRAM
     Route: 048
     Dates: start: 20111130, end: 20111203
  25. LENADEX [Suspect]
     Dosage: 4 MILLIGRAM
     Route: 048
     Dates: start: 20111204
  26. LENADEX [Suspect]
     Dosage: 20 MILLIGRAM
     Route: 048
     Dates: start: 20111228, end: 20111231
  27. LENADEX [Suspect]
     Dosage: 4 MILLIGRAM
     Route: 048
     Dates: start: 20120101, end: 20120110
  28. LENADEX [Suspect]
     Dosage: 20 MILLIGRAM
     Route: 048
     Dates: start: 20120117, end: 20120120
  29. LENADEX [Suspect]
     Dosage: 4 MILLIGRAM
     Route: 048
     Dates: start: 20120121, end: 20120213
  30. LENADEX [Suspect]
     Dosage: 20 MILLIGRAM
     Route: 048
     Dates: start: 20120214, end: 20120217
  31. LENADEX [Suspect]
     Dosage: 4 MILLIGRAM
     Route: 048
     Dates: start: 20120218, end: 20120312
  32. LENADEX [Suspect]
     Dosage: 20 MILLIGRAM
     Route: 048
     Dates: start: 20120313, end: 20120316
  33. LENADEX [Suspect]
     Dosage: 4 MILLIGRAM
     Route: 048
     Dates: start: 20120317, end: 20120813
  34. GASTER [Concomitant]
     Indication: PROPHYLAXIS
     Dosage: 20 MILLIGRAM
     Route: 048
     Dates: start: 20110113, end: 20110402
  35. GASTER [Concomitant]
     Dosage: 20 MILLIGRAM
     Route: 048
     Dates: start: 20110407, end: 20110726
  36. GASTER [Concomitant]
     Dosage: 20 MILLIGRAM
     Route: 048
     Dates: start: 20110802, end: 20120813
  37. YOUPIS [Concomitant]
     Indication: PROPHYLAXIS
     Dosage: 10 DROPS
     Route: 048
     Dates: start: 20110113, end: 20110402
  38. DEXART [Concomitant]
     Indication: PLASMA CELL MYELOMA
     Dosage: 33 MILLIGRAM
     Route: 048
     Dates: start: 20110113, end: 20110201
  39. BAYASPIRIN [Concomitant]
     Indication: PROPHYLAXIS
     Dosage: 100 MILLIGRAM
     Route: 048
     Dates: start: 20110113, end: 20110402
  40. BAYASPIRIN [Concomitant]
     Dosage: 100 MILLIGRAM
     Route: 048
     Dates: start: 20110407, end: 20110726
  41. BAYASPIRIN [Concomitant]
     Dosage: 100 MILLIGRAM
     Route: 048
     Dates: start: 20110802
  42. PANPYOTIN [Concomitant]
     Indication: PROPHYLAXIS
     Dosage: 2 GRAM
     Route: 048
     Dates: start: 20110113, end: 20110402
  43. PANPYOTIN [Concomitant]
     Dosage: 2 GRAM
     Route: 048
     Dates: start: 20110407, end: 20110726
  44. PANPYOTIN [Concomitant]
     Dosage: 2 GRAM
     Route: 048
     Dates: start: 20110802
  45. MAGNESIUM OXIDE [Concomitant]
     Indication: PROPHYLAXIS
     Dosage: 1 GRAM
     Route: 048
     Dates: start: 20110113, end: 20110402
  46. MAGNESIUM OXIDE [Concomitant]
     Dosage: 1 GRAM
     Route: 048
     Dates: start: 20110407, end: 20110726
  47. MAGNESIUM OXIDE [Concomitant]
     Dosage: 1 GRAM
     Route: 048
     Dates: start: 20110802
  48. BARACLUDE [Concomitant]
     Indication: PROPHYLAXIS
     Dosage: .5 MILLIGRAM
     Route: 048
     Dates: start: 20110419
  49. BARACLUDE [Concomitant]
     Dosage: .5 MILLIGRAM
     Route: 048
     Dates: start: 20110802, end: 20120813
  50. CONCENTRATED RED CELLS [Concomitant]
     Indication: PLASMA CELL MYELOMA
     Dosage: 2 UNITS
     Route: 041
     Dates: start: 20120117, end: 20120117
  51. CONCENTRATED RED CELLS [Concomitant]
     Dosage: 2 UNITS
     Route: 041
     Dates: start: 20120221, end: 20120221
  52. CONCENTRATED RED CELLS [Concomitant]
     Dosage: 2 UNITS
     Route: 041
     Dates: start: 20120420, end: 20120420
  53. CONCENTRATED RED CELLS [Concomitant]
     Dosage: 2 UNITS
     Route: 041
     Dates: start: 20120424, end: 20120424
  54. CONCENTRATED RED CELLS [Concomitant]
     Dosage: 2 UNITS
     Route: 041
     Dates: start: 20120522, end: 20120522
  55. CONCENTRATED RED CELLS [Concomitant]
     Dosage: 2 UNITS
     Route: 041
     Dates: start: 20120529, end: 20120529
  56. CONCENTRATED RED CELLS [Concomitant]
     Dosage: 2 UNITS
     Route: 041
     Dates: start: 20120612, end: 20120612
  57. CONCENTRATED RED CELLS [Concomitant]
     Dosage: 2 UNITS
     Route: 041
     Dates: start: 20120614, end: 20120614
  58. CONCENTRATED RED CELLS [Concomitant]
     Dosage: 2 UNITS
     Route: 041
     Dates: start: 20120626, end: 20120626
  59. CONCENTRATED RED CELLS [Concomitant]
     Dosage: 2 UNITS
     Route: 041
     Dates: start: 20120703, end: 20120703
  60. CONCENTRATED RED CELLS [Concomitant]
     Dosage: 2 UNITS
     Route: 041
     Dates: start: 20120710, end: 20120710
  61. CONCENTRATED RED CELLS [Concomitant]
     Dosage: 2 UNITS
     Route: 041
     Dates: start: 20120719, end: 20120719
  62. CONCENTRATED RED CELLS [Concomitant]
     Dosage: 2 UNITS
     Route: 041
     Dates: start: 20120726, end: 20120726
  63. CONCENTRATED RED CELLS [Concomitant]
     Dosage: 2 UNITS
     Route: 041
     Dates: start: 20120806, end: 20120806
  64. CONCENTRATED RED CELLS [Concomitant]
     Dosage: 2 UNITS
     Route: 041
     Dates: start: 20120813, end: 20120813
  65. PLATELET CONCENTRATE [Concomitant]
     Indication: PLASMA CELL MYELOMA
     Dosage: 10 UNITS
     Route: 041
     Dates: start: 20120614, end: 20120614
  66. PLATELET CONCENTRATE [Concomitant]
     Dosage: 10 UNITS
     Route: 041
     Dates: start: 20120626, end: 20120626
  67. PLATELET CONCENTRATE [Concomitant]
     Dosage: 10 UNITS
     Route: 041
     Dates: start: 20120710, end: 20120710
  68. PLATELET CONCENTRATE [Concomitant]
     Dosage: 10 UNITS
     Route: 041
     Dates: start: 20120718, end: 20120718
  69. PLATELET CONCENTRATE [Concomitant]
     Dosage: 10 UNITS
     Route: 041
     Dates: start: 20120720, end: 20120720
  70. PLATELET CONCENTRATE [Concomitant]
     Dosage: 10 UNITS
     Route: 041
     Dates: start: 20120723, end: 20120723
  71. PLATELET CONCENTRATE [Concomitant]
     Dosage: 10 UNITS
     Route: 041
     Dates: start: 20120725, end: 20120725
  72. PLATELET CONCENTRATE [Concomitant]
     Dosage: 10 UNITS
     Route: 041
     Dates: start: 20120727, end: 20120727
  73. PLATELET CONCENTRATE [Concomitant]
     Dosage: 10 UNITS
     Route: 041
     Dates: start: 20120730, end: 20120730
  74. PLATELET CONCENTRATE [Concomitant]
     Dosage: 10 UNITS
     Route: 041
     Dates: start: 20120801, end: 20120801
  75. PLATELET CONCENTRATE [Concomitant]
     Dosage: 10 UNITS
     Route: 041
     Dates: start: 20120803, end: 20120803
  76. PLATELET CONCENTRATE [Concomitant]
     Dosage: 10 UNITS
     Route: 041
     Dates: start: 20120806, end: 20120806
  77. PLATELET CONCENTRATE [Concomitant]
     Dosage: 10 UNITS
     Route: 041
     Dates: start: 20120808, end: 20120808
  78. PLATELET CONCENTRATE [Concomitant]
     Dosage: 10 UNITS
     Route: 041
     Dates: start: 20120810, end: 20120810
  79. PLATELET CONCENTRATE [Concomitant]
     Dosage: 10 UNITS
     Route: 041
     Dates: start: 20120814, end: 20120814

REACTIONS (11)
  - Hepatitis B [Recovering/Resolving]
  - Platelet count decreased [Recovered/Resolved]
  - Neutropenia [Not Recovered/Not Resolved]
  - Anaemia [Not Recovered/Not Resolved]
  - Platelet count decreased [Not Recovered/Not Resolved]
  - Eyelid oedema [Not Recovered/Not Resolved]
  - Constipation [Recovering/Resolving]
  - Neuropathy peripheral [Not Recovered/Not Resolved]
  - Neutropenia [Recovered/Resolved]
  - Urticaria [Recovering/Resolving]
  - Hyperglycaemia [Not Recovered/Not Resolved]
